FAERS Safety Report 6665130-2 (Version None)
Quarter: 2010Q2

REPORT INFORMATION
  Report Type: 
  Country: None (occurrence: None)
  Receive Date: 20100402
  Receipt Date: 20100323
  Transmission Date: 20101027
  Serious: Yes (Hospitalization)
  Sender: FDA-Public Use
  Company Number: BR-JNJFOC-20100303441

PATIENT
  Age: 15 Year
  Sex: Female

DRUGS (4)
  1. ULTRACET [Suspect]
     Indication: ARTHRALGIA
     Dosage: 1 TABLET EVERY 8 HOURS
     Route: 065
  2. ULTRACET [Suspect]
     Indication: PAIN IN EXTREMITY
     Dosage: 1 TABLET EVERY 8 HOURS
     Route: 065
  3. ULTRACET [Suspect]
     Indication: BACK PAIN
     Dosage: 1 TABLET EVERY 8 HOURS
     Route: 065
  4. ANTI-INFLAMMATORY, NOS [Suspect]
     Indication: PAIN
     Route: 065

REACTIONS (2)
  - ANURIA [None]
  - MUSCULAR WEAKNESS [None]
